FAERS Safety Report 19675513 (Version 1)
Quarter: 2021Q3

REPORT INFORMATION
  Report Type: Spontaneous
  Country: FR (occurrence: FR)
  Receive Date: 20210809
  Receipt Date: 20210809
  Transmission Date: 20211014
  Serious: Yes (Life-Threatening, Hospitalization)
  Sender: FDA-Public Use
  Company Number: FR-MYLANLABS-2021M1049042

PATIENT
  Age: 7 Year
  Sex: Female
  Weight: 21.3 kg

DRUGS (9)
  1. HYDROXYZINE [Suspect]
     Active Substance: HYDROXYZINE HYDROCHLORIDE
     Indication: PRODUCT USED FOR UNKNOWN INDICATION
     Route: 048
     Dates: end: 20210109
  2. TEICOPLANIN [Suspect]
     Active Substance: TEICOPLANIN
     Indication: OSTEOMYELITIS BACTERIAL
     Dosage: UNK
     Route: 041
     Dates: start: 20210108, end: 20210109
  3. BACTRIM [Suspect]
     Active Substance: SULFAMETHOXAZOLE\TRIMETHOPRIM
     Indication: OSTEOMYELITIS BACTERIAL
     Dosage: 350 MG TRIM?THOPRIME 2X/J + 70 MG SULFAM?THOXAZOLE 2X/J
     Route: 048
     Dates: start: 20201207, end: 20201231
  4. AMOXICILLINE PANPHARMA [Suspect]
     Active Substance: AMOXICILLIN
     Indication: OSTEOMYELITIS BACTERIAL
     Dosage: 3 DOSAGE FORM, QD
     Route: 042
     Dates: start: 20201203, end: 20201206
  5. AMOXICILLINE/ACIDE CLAVULANIQ. SANDOZ [Suspect]
     Active Substance: AMOXICILLIN\CLAVULANIC ACID
     Indication: OSTEOMYELITIS BACTERIAL
     Dosage: 3 DOSAGE FORM, QD
     Route: 048
     Dates: start: 20201201, end: 20201203
  6. AUGMENTIN [Suspect]
     Active Substance: AMOXICILLIN\CLAVULANATE POTASSIUM
     Indication: OSTEOMYELITIS BACTERIAL
     Route: 041
     Dates: start: 20201127, end: 20201130
  7. DOLIPRANE [Suspect]
     Active Substance: ACETAMINOPHEN
     Indication: PYREXIA
     Dosage: SI BESOIN
     Route: 048
     Dates: start: 20201206, end: 20210109
  8. AMIKACINE                          /00391001/ [Concomitant]
     Active Substance: AMIKACIN
  9. NORADRENALINE                      /00127501/ [Concomitant]
     Active Substance: NOREPINEPHRINE
     Dosage: UNK

REACTIONS (1)
  - Drug reaction with eosinophilia and systemic symptoms [Not Recovered/Not Resolved]

NARRATIVE: CASE EVENT DATE: 20201224
